FAERS Safety Report 10145163 (Version 1)
Quarter: 2014Q2

REPORT INFORMATION
  Report Type: Spontaneous
  Country: FR (occurrence: FR)
  Receive Date: 20140501
  Receipt Date: 20140501
  Transmission Date: 20141212
  Serious: Yes (Other)
  Sender: FDA-Public Use
  Company Number: FR-ROCHE-1393127

PATIENT
  Age: 41 Year
  Sex: Male

DRUGS (3)
  1. VEMURAFENIB [Suspect]
     Indication: METASTATIC MALIGNANT MELANOMA
     Route: 065
     Dates: start: 201207
  2. VEMURAFENIB [Suspect]
     Dosage: (25% REDUCTION)
     Route: 065
  3. VEMURAFENIB [Suspect]
     Dosage: DRUG WITH HELD AGAIN DUE TO RENAL TOXICITY
     Route: 065

REACTIONS (1)
  - Renal failure acute [Recovered/Resolved]
